FAERS Safety Report 10492023 (Version 1)
Quarter: 2014Q4

REPORT INFORMATION
  Report Type: Spontaneous
  Country: US (occurrence: US)
  Receive Date: 20141002
  Receipt Date: 20141002
  Transmission Date: 20150528
  Serious: No
  Sender: FDA-Public Use
  Company Number: US-GLAXOSMITHKLINE-A1064105A

PATIENT
  Age: 51 Year
  Sex: Male

DRUGS (6)
  1. ADVAIR HFA [Suspect]
     Active Substance: FLUTICASONE PROPIONATE\SALMETEROL XINAFOATE
     Indication: CHRONIC OBSTRUCTIVE PULMONARY DISEASE
     Dosage: 1PUFF TWICE PER DAY
     Route: 055
     Dates: start: 20140306
  2. DOXYCYCLINE. [Concomitant]
     Active Substance: DOXYCYCLINE
  3. AMOXICILLIN. [Concomitant]
     Active Substance: AMOXICILLIN
  4. LEVOFLOXACIN. [Concomitant]
     Active Substance: LEVOFLOXACIN
  5. ALBUTEROL. [Concomitant]
     Active Substance: ALBUTEROL
  6. METHYLPREDNISONE [Concomitant]
     Active Substance: METHYLPREDNISOLONE

REACTIONS (3)
  - Retching [Recovered/Resolved]
  - Sensory disturbance [Recovered/Resolved]
  - Drug administration error [Recovered/Resolved]

NARRATIVE: CASE EVENT DATE: 20140306
